FAERS Safety Report 10651789 (Version 1)
Quarter: 2014Q4

REPORT INFORMATION
  Report Type: Spontaneous
  Country: US (occurrence: None)
  Receive Date: 20141212
  Receipt Date: 20141212
  Transmission Date: 20150529
  Serious: Yes (Hospitalization)
  Sender: FDA-Public Use
  Company Number: None

PATIENT
  Sex: Female
  Weight: 81 kg

DRUGS (5)
  1. ZYPREXA [Concomitant]
     Active Substance: OLANZAPINE
  2. CYMBALTA [Concomitant]
     Active Substance: DULOXETINE HYDROCHLORIDE
  3. NOROTIN (SIC) [Concomitant]
  4. LISINOPRIL. [Concomitant]
     Active Substance: LISINOPRIL
  5. NEUTROGENA FRESH FOAMING CLEANSER [Suspect]
     Active Substance: COSMETICS
     Indication: INFECTION PROPHYLAXIS
     Dosage: QUARTER SIZE, ONCE, TOPICAL
     Route: 061
     Dates: start: 20141119, end: 20141119

REACTIONS (6)
  - Burns third degree [None]
  - Eye swelling [None]
  - Erythema [None]
  - Pyrexia [None]
  - Application site vesicles [None]
  - Wound infection [None]

NARRATIVE: CASE EVENT DATE: 20141119
